FAERS Safety Report 15762788 (Version 3)
Quarter: 2019Q2

REPORT INFORMATION
  Report Type: Report from Study
  Country: JP (occurrence: JP)
  Receive Date: 20181226
  Receipt Date: 20190510
  Transmission Date: 20190711
  Serious: Yes (Death)
  Sender: FDA-Public Use
  Company Number: PHJP2018JP021285

PATIENT
  Age: 56 Year
  Sex: Male
  Weight: 50 kg

DRUGS (3)
  1. COSENTYX [Suspect]
     Active Substance: SECUKINUMAB
     Dosage: 300 MG, 4W
     Route: 058
     Dates: start: 20161108, end: 20170228
  2. COSENTYX [Suspect]
     Active Substance: SECUKINUMAB
     Indication: PSORIASIS
     Dosage: 300 MG, QW
     Route: 058
     Dates: start: 20160913, end: 20161011
  3. TALION [Concomitant]
     Indication: PSORIASIS
     Dosage: 20 MG, UNK
     Route: 048
     Dates: end: 20170501

REACTIONS (4)
  - Vomiting [Unknown]
  - Subarachnoid haemorrhage [Fatal]
  - Ventricular extrasystoles [Fatal]
  - Loss of consciousness [Unknown]

NARRATIVE: CASE EVENT DATE: 20180927
